FAERS Safety Report 4323306-3 (Version None)
Quarter: 2004Q1

REPORT INFORMATION
  Report Type: 
  Country: None (occurrence: None)
  Receive Date: 20040323
  Receipt Date: 20040323
  Transmission Date: 20041129
  Serious: Yes (Other)
  Sender: FDA-Public Use
  Company Number: None

PATIENT
  Age: 63 Year
  Sex: Male
  Weight: 124.3 kg

DRUGS (8)
  1. INFLIXIMAB [Suspect]
     Indication: RHEUMATOID ARTHRITIS
     Dosage: 500 MG , Q4 WEEKS, IV
     Route: 042
     Dates: start: 20030103, end: 20030925
  2. TERAZOSIN HCL [Concomitant]
  3. SYNTHROID [Concomitant]
  4. FELODIPINE SA [Concomitant]
  5. GLYBURIDE 1.25 MG/ METFORMIN HCL [Concomitant]
  6. PREDNISONE [Concomitant]
  7. LOVASTATIN [Concomitant]
  8. KETOCONAZOLE [Concomitant]

REACTIONS (6)
  - BACK PAIN [None]
  - CHEST PAIN [None]
  - FLUSHING [None]
  - HEADACHE [None]
  - HYPERTENSION [None]
  - RASH [None]
